FAERS Safety Report 13417793 (Version 1)
Quarter: 2017Q2

REPORT INFORMATION
  Report Type: Spontaneous
  Country: US (occurrence: US)
  Receive Date: 20170406
  Receipt Date: 20170406
  Transmission Date: 20170830
  Serious: No
  Sender: FDA-Public Use
  Company Number: US-ALLERGAN-1678146US

PATIENT
  Sex: Female

DRUGS (1)
  1. CANASA [Suspect]
     Active Substance: MESALAMINE
     Indication: PROCTITIS ULCERATIVE
     Dosage: UNK
     Route: 065

REACTIONS (3)
  - Vulvovaginal discomfort [Unknown]
  - Inappropriate schedule of drug administration [Unknown]
  - Vulvovaginal burning sensation [Unknown]
